FAERS Safety Report 5292409-1 (Version None)
Quarter: 2007Q2

REPORT INFORMATION
  Report Type: 
  Country: None (occurrence: None)
  Receive Date: 20070410
  Receipt Date: 20070329
  Transmission Date: 20071010
  Serious: Yes (Other)
  Sender: FDA-Public Use
  Company Number: US-PFIZER INC-2007026560

PATIENT
  Sex: Female

DRUGS (6)
  1. CHANTIX [Suspect]
     Indication: EX-SMOKER
     Route: 048
  2. FELODIPINE [Concomitant]
  3. LISINOPRIL [Concomitant]
  4. DIAZEPAM [Concomitant]
  5. ACETAMINOPHEN AND CODEINE PHOSPHATE [Concomitant]
  6. ACETAMINOPHEN AND OXYCODONE HCL [Concomitant]

REACTIONS (1)
  - HAEMORRHAGIC STROKE [None]
